FAERS Safety Report 22081748 (Version 1)
Quarter: 2023Q1

REPORT INFORMATION
  Report Type: Spontaneous
  Country: US (occurrence: US)
  Receive Date: 20230310
  Receipt Date: 20230310
  Transmission Date: 20230417
  Serious: Yes (Hospitalization, Other)
  Sender: FDA-Public Use
  Company Number: US-BRISTOL-MYERS SQUIBB COMPANY-2023-030631

PATIENT
  Age: 74 Year
  Sex: Female
  Weight: 42.64 kg

DRUGS (1)
  1. POMALYST [Suspect]
     Active Substance: POMALIDOMIDE
     Indication: Plasma cell myeloma
     Dosage: FREQUENCY: 3 WEEK ON, 1 WEEK OFF
     Route: 048
     Dates: end: 20230119

REACTIONS (1)
  - Plasma cell myeloma [Unknown]
